FAERS Safety Report 20863380 (Version 1)
Quarter: 2022Q2

REPORT INFORMATION
  Report Type: Spontaneous
  Country: US (occurrence: US)
  Receive Date: 20220523
  Receipt Date: 20220523
  Transmission Date: 20220721
  Serious: Yes (Other)
  Sender: FDA-Public Use
  Company Number: US-PFIZER INC-202200718608

PATIENT
  Sex: Female
  Weight: 38.549 kg

DRUGS (1)
  1. PAXLOVID [Suspect]
     Active Substance: NIRMATRELVIR\RITONAVIR
     Indication: COVID-19 treatment
     Dosage: UNK
     Dates: start: 20220504, end: 20220508

REACTIONS (13)
  - Tracheal compression [Unknown]
  - Tracheal stenosis [Unknown]
  - Dysphonia [Unknown]
  - Sinus disorder [Unknown]
  - Pain [Unknown]
  - Asthenia [Unknown]
  - Dysphagia [Unknown]
  - Dyspnoea [Unknown]
  - Throat tightness [Unknown]
  - Fatigue [Recovering/Resolving]
  - Decreased appetite [Unknown]
  - Speech disorder [Unknown]
  - Choking sensation [Unknown]

NARRATIVE: CASE EVENT DATE: 20220505
